FAERS Safety Report 8820335 (Version 2)
Quarter: 2013Q1

REPORT INFORMATION
  Report Type: Spontaneous
  Country: US (occurrence: US)
  Receive Date: 20121002
  Receipt Date: 20130201
  Transmission Date: 20140127
  Serious: No
  Sender: FDA-Public Use
  Company Number: US-009507513-1209USA005231

PATIENT
  Age: 50 Year
  Sex: Male

DRUGS (4)
  1. VICTRELIS [Suspect]
     Indication: HEPATITIS C
     Dosage: 800 MG, TID
     Route: 048
     Dates: start: 20120909, end: 20130101
  2. PEGASYS [Suspect]
     Dosage: UNK
  3. RIBAPAK [Suspect]
     Dosage: UNK
  4. RIBASPHERE [Suspect]

REACTIONS (7)
  - Rash [Unknown]
  - Pruritus [Unknown]
  - Dry skin [Unknown]
  - Fatigue [Unknown]
  - Dyspnoea [Unknown]
  - White blood cell count decreased [Unknown]
  - Nausea [Unknown]
